FAERS Safety Report 10173957 (Version 3)
Quarter: 2014Q3

REPORT INFORMATION
  Report Type: Spontaneous
  Country: US (occurrence: US)
  Receive Date: 20140515
  Receipt Date: 20140804
  Transmission Date: 20150326
  Serious: Yes (Hospitalization)
  Sender: FDA-Public Use
  Company Number: US-BAYER-2014-071531

PATIENT
  Age: 44 Year
  Sex: Female
  Weight: 91 kg

DRUGS (3)
  1. MIRENA [Suspect]
     Active Substance: LEVONORGESTREL
     Indication: CONTRACEPTION
     Dosage: 20 MCG/24HR, CONT
     Route: 015
     Dates: start: 20110406, end: 20131021
  2. DIFLUCAN [Concomitant]
     Active Substance: FLUCONAZOLE
  3. NAPROSYN [Concomitant]
     Active Substance: NAPROXEN
     Indication: ABDOMINAL PAIN

REACTIONS (9)
  - Abdominal pain lower [None]
  - Vulvovaginal pain [None]
  - Depression [None]
  - Medical device pain [None]
  - Injury [None]
  - Procedural pain [None]
  - Uterine perforation [None]
  - Post procedural discomfort [None]
  - Anxiety [None]

NARRATIVE: CASE EVENT DATE: 201310
